FAERS Safety Report 8805859 (Version 1)
Quarter: 2012Q4

REPORT INFORMATION
  Report Type: 
  Country: AR (occurrence: AR)
  Receive Date: 20120925
  Receipt Date: 20120925
  Transmission Date: 20130627
  Serious: Yes (Other)
  Sender: FDA-Public Use
  Company Number: AR-AMGEN-ARGSP2012060080

PATIENT
  Age: 52 Year
  Sex: Female

DRUGS (6)
  1. ENBREL [Suspect]
     Indication: RHEUMATOID ARTHRITIS
     Dosage: 50 mg, weekly
     Route: 058
     Dates: start: 20071104, end: 20120710
  2. DICLOFENAC [Concomitant]
     Dosage: UNK
  3. METICORTEN [Concomitant]
     Dosage: UNK
  4. HYDROXYCHLOROQUINE [Concomitant]
     Dosage: UNK
  5. METHOTREXATE [Concomitant]
     Dosage: UNK
     Dates: end: 20120710
  6. LOSARTAN [Concomitant]
     Dosage: UNK

REACTIONS (3)
  - Scapula fracture [Recovering/Resolving]
  - Humerus fracture [Recovering/Resolving]
  - Fall [Unknown]
